FAERS Safety Report 7576072 (Version 3)
Quarter: 2014Q3

REPORT INFORMATION
  Report Type: Report from Study
  Country: MX (occurrence: MX)
  Receive Date: 20100908
  Receipt Date: 20140902
  Transmission Date: 20150326
  Serious: Yes (Hospitalization)
  Sender: FDA-Public Use
  Company Number: PHHY2010MX56441

PATIENT
  Age: 44 Year
  Sex: Female

DRUGS (5)
  1. KEFLEX [Concomitant]
     Active Substance: CEPHALEXIN
  2. METFORMIN [Concomitant]
     Active Substance: METFORMIN HYDROCHLORIDE
  3. DIABET [Concomitant]
  4. CO-DIOVAN [Suspect]
     Active Substance: HYDROCHLOROTHIAZIDE\VALSARTAN
     Indication: HYPERTENSION
     Dosage: 1 DF (160/25 MG), DAILY
     Route: 048
     Dates: start: 200908
  5. CO-DIOVAN [Suspect]
     Active Substance: HYDROCHLOROTHIAZIDE\VALSARTAN
     Dosage: 1 DF (80/12.5 MG), DAILY
     Route: 048
     Dates: start: 201101

REACTIONS (4)
  - Endometriosis [Recovered/Resolved]
  - Nasopharyngitis [Not Recovered/Not Resolved]
  - Uterine malposition [Recovered/Resolved]
  - Neoplasm malignant [Recovered/Resolved]

NARRATIVE: CASE EVENT DATE: 20100510
